FAERS Safety Report 4324619-1 (Version None)
Quarter: 2004Q1

REPORT INFORMATION
  Report Type: 
  Country: None (occurrence: None)
  Receive Date: 20040325
  Receipt Date: 20040325
  Transmission Date: 20041129
  Serious: Yes (Other)
  Sender: FDA-Public Use
  Company Number: None

PATIENT
  Age: 59 Year
  Sex: Male
  Weight: 68 kg

DRUGS (1)
  1. INTEGRILIN [Suspect]
     Indication: ACUTE CORONARY SYNDROME
     Dosage: 180 MCG/KG IV, 0.5 MCG/KG IV
     Route: 042
     Dates: start: 20040320, end: 20040323

REACTIONS (2)
  - FLANK PAIN [None]
  - NAUSEA [None]
